FAERS Safety Report 24354846 (Version 2)
Quarter: 2024Q3

REPORT INFORMATION
  Report Type: Spontaneous
  Country: CA (occurrence: CA)
  Receive Date: 20240923
  Receipt Date: 20240926
  Transmission Date: 20241016
  Serious: Yes (Hospitalization)
  Sender: BOEHRINGER INGELHEIM
  Company Number: CA-BoehringerIngelheim-2024-BI-052820

PATIENT
  Age: 53 Year
  Sex: Male

DRUGS (1)
  1. JARDIANCE [Suspect]
     Active Substance: EMPAGLIFLOZIN
     Indication: Diabetes mellitus

REACTIONS (5)
  - Fournier^s gangrene [Not Recovered/Not Resolved]
  - Scrotal abscess [Not Recovered/Not Resolved]
  - Genital rash [Not Recovered/Not Resolved]
  - Medical induction of coma [Not Recovered/Not Resolved]
  - Blood pressure decreased [Not Recovered/Not Resolved]

NARRATIVE: CASE EVENT DATE: 20240101
